FAERS Safety Report 8075503-1 (Version None)
Quarter: 2012Q1

REPORT INFORMATION
  Report Type: 
  Country: None (occurrence: None)
  Receive Date: 20120127
  Receipt Date: 20120119
  Transmission Date: 20120608
  Serious: Yes (Other)
  Sender: FDA-Public Use
  Company Number: US-BAYER-2012-006918

PATIENT
  Sex: Female

DRUGS (2)
  1. DROSPIRENONE AND ETHINYL ESTRADIOL [Suspect]
     Dosage: UNK
     Dates: start: 20100801, end: 20101201
  2. YAZ [Suspect]
     Dosage: UNK
     Dates: start: 20090101, end: 20100801

REACTIONS (5)
  - INJURY [None]
  - ANXIETY [None]
  - CEREBRAL THROMBOSIS [None]
  - EMOTIONAL DISTRESS [None]
  - PAIN [None]
